FAERS Safety Report 19289210 (Version 1)
Quarter: 2021Q2

REPORT INFORMATION
  Report Type: Spontaneous
  Country: US (occurrence: US)
  Receive Date: 20210521
  Receipt Date: 20210521
  Transmission Date: 20210717
  Serious: Yes (Death)
  Sender: FDA-Public Use
  Company Number: US-PFIZER INC-2020415103

PATIENT
  Age: 54 Year
  Sex: Female
  Weight: 64.41 kg

DRUGS (1)
  1. REVATIO [Suspect]
     Active Substance: SILDENAFIL CITRATE
     Indication: PULMONARY HYPERTENSION
     Dosage: 20 MG, 3X/DAY
     Route: 048

REACTIONS (5)
  - Death [Fatal]
  - Dyspnoea [Fatal]
  - Pulmonary hypertension [Fatal]
  - Cardiac failure [Fatal]
  - Pulmonary oedema [Fatal]
